FAERS Safety Report 23750112 (Version 2)
Quarter: 2024Q2

REPORT INFORMATION
  Report Type: Spontaneous
  Country: FR (occurrence: FR)
  Receive Date: 20240417
  Receipt Date: 20240520
  Transmission Date: 20240716
  Serious: Yes (Hospitalization, Other)
  Sender: FDA-Public Use
  Company Number: None

PATIENT
  Age: 79 Year
  Sex: Female
  Weight: 59 kg

DRUGS (6)
  1. ELIQUIS [Suspect]
     Active Substance: APIXABAN
     Indication: Deep vein thrombosis
     Route: 048
     Dates: end: 20240307
  2. AMIVANTAMAB [Suspect]
     Active Substance: AMIVANTAMAB
     Indication: Lung adenocarcinoma stage IV
     Route: 042
     Dates: start: 202306, end: 20240227
  3. ARANESP [Concomitant]
     Active Substance: DARBEPOETIN ALFA
     Indication: Anaemia
  4. POTASSIUM CHLORIDE [Concomitant]
     Active Substance: POTASSIUM CHLORIDE
     Indication: Product used for unknown indication
  5. ALBUTEROL SULFATE [Concomitant]
     Active Substance: ALBUTEROL SULFATE
     Indication: Product used for unknown indication
  6. VENOFER [Concomitant]
     Active Substance: IRON SUCROSE
     Indication: Anaemia
     Dosage: ON 01-30

REACTIONS (3)
  - Hepatitis acute [Recovering/Resolving]
  - Acute kidney injury [Recovered/Resolved]
  - Hypoglycaemia [Unknown]

NARRATIVE: CASE EVENT DATE: 20240307
